FAERS Safety Report 9744612 (Version 1)
Quarter: 2013Q4

REPORT INFORMATION
  Report Type: Report from Study
  Country: VE (occurrence: VE)
  Receive Date: 20131210
  Receipt Date: 20131210
  Transmission Date: 20140711
  Serious: Yes (Other)
  Sender: FDA-Public Use
  Company Number: PHHY2013VE143972

PATIENT
  Age: 67 Year
  Sex: Female

DRUGS (6)
  1. ACLASTA [Suspect]
     Indication: OSTEOPENIA
     Dosage: 5 MG, ANNUAL
     Route: 042
     Dates: start: 20090213
  2. ACLASTA [Suspect]
     Indication: OFF LABEL USE
     Dosage: 5 MG, ANNUAL
     Route: 042
     Dates: start: 2010
  3. ACLASTA [Suspect]
     Dosage: 5 MG, ANNUAL
     Route: 042
     Dates: start: 2011
  4. ACLASTA [Suspect]
     Dosage: 5 MG, ANNUAL
     Route: 042
     Dates: start: 20120330
  5. CALCIUM CARBONATE W/VITAMIN D NOS [Concomitant]
     Indication: OSTEOPENIA
     Dosage: 1500 MG - 200 IU, DAILY
     Route: 048
  6. ARTRODAR [Concomitant]
     Indication: ARTHRALGIA
     Dosage: 50 MG, DAILY
     Route: 048

REACTIONS (4)
  - Fall [Recovered/Resolved]
  - Skin wound [Recovered/Resolved]
  - Contusion [Recovered/Resolved]
  - Joint swelling [Recovered/Resolved]
